FAERS Safety Report 7893459-9 (Version None)
Quarter: 2011Q4

REPORT INFORMATION
  Report Type: 
  Country: None (occurrence: None)
  Receive Date: 20111104
  Receipt Date: 20111024
  Transmission Date: 20120403
  Serious: Yes (Hospitalization, Other)
  Sender: FDA-Public Use
  Company Number: US-ELI_LILLY_AND_COMPANY-US201001004825

PATIENT
  Sex: Male

DRUGS (3)
  1. FORTEO [Suspect]
     Dosage: 20 UG, DAILY (1/D)
     Route: 065
  2. FORTEO [Suspect]
     Indication: OSTEOPOROSIS
     Dosage: 20 UG, QD
     Dates: start: 20100101
  3. FORTEO [Suspect]
     Dosage: 20 UG, QD

REACTIONS (4)
  - HAEMOPTYSIS [None]
  - SURGERY [None]
  - INCORRECT STORAGE OF DRUG [None]
  - INJURY ASSOCIATED WITH DEVICE [None]
